FAERS Safety Report 15283581 (Version 6)
Quarter: 2018Q4

REPORT INFORMATION
  Report Type: Report from Study
  Country: JP (occurrence: JP)
  Receive Date: 20180816
  Receipt Date: 20181228
  Transmission Date: 20190204
  Serious: Yes (Death, Other)
  Sender: FDA-Public Use
  Company Number: JP-TAKEDA-2018MPI010557

PATIENT
  Age: 64 Year
  Sex: Female
  Weight: 47.9 kg

DRUGS (7)
  1. BORTEZOMIB. [Suspect]
     Active Substance: BORTEZOMIB
     Indication: PLASMA CELL MYELOMA
     Dosage: 1.3 MG/M2, UNK
     Route: 065
     Dates: start: 20171031, end: 20171110
  2. DARZALEX [Suspect]
     Active Substance: DARATUMUMAB
     Dosage: 16 MG/KG, 1/WEEK
     Route: 041
     Dates: start: 20171107, end: 20171107
  3. NEUTROGIN [Concomitant]
     Active Substance: LENOGRASTIM
     Indication: WHITE BLOOD CELL COUNT DECREASED
     Dosage: 100 MG, UNK
     Route: 065
     Dates: start: 20171114, end: 20171119
  4. DEXAMETHASONE. [Suspect]
     Active Substance: DEXAMETHASONE
     Dosage: 20 MG, QD
     Route: 065
     Dates: start: 20171031, end: 20171111
  5. GANCICLOVIR. [Concomitant]
     Active Substance: GANCICLOVIR
     Indication: CYTOMEGALOVIRUS INFECTION
     Dosage: 250 MG, UNK
     Route: 065
     Dates: start: 20171120, end: 20171129
  6. DARZALEX [Suspect]
     Active Substance: DARATUMUMAB
     Indication: PLASMA CELL MYELOMA
     Dosage: 16 MG/KG, 1/WEEK
     Route: 041
     Dates: start: 20171031, end: 20171031
  7. DEXAMETHASONE. [Suspect]
     Active Substance: DEXAMETHASONE
     Indication: PLASMA CELL MYELOMA
     Dosage: UNK
     Route: 065
     Dates: start: 20170929, end: 20171004

REACTIONS (3)
  - Cytomegalovirus infection [Recovered/Resolved]
  - White blood cell count decreased [Recovered/Resolved]
  - Plasma cell myeloma [Fatal]

NARRATIVE: CASE EVENT DATE: 20171106
